FAERS Safety Report 18787540 (Version 1)
Quarter: 2021Q1

REPORT INFORMATION
  Report Type: Spontaneous
  Country: AR (occurrence: AR)
  Receive Date: 20210126
  Receipt Date: 20210126
  Transmission Date: 20210419
  Serious: Yes (Other)
  Sender: FDA-Public Use
  Company Number: AR-PFIZER INC-2021050852

PATIENT
  Age: 70 Year
  Sex: Male

DRUGS (1)
  1. SUTENT [Suspect]
     Active Substance: SUNITINIB MALATE
     Indication: METASTATIC RENAL CELL CARCINOMA
     Dosage: 50 MG, CYCLIC (DAILY, 2X1 SCHEME)
     Dates: start: 20201103, end: 202101

REACTIONS (5)
  - Arthritis [Unknown]
  - Skin exfoliation [Unknown]
  - Diabetes mellitus [Unknown]
  - Vomiting [Unknown]
  - Tongue exfoliation [Unknown]

NARRATIVE: CASE EVENT DATE: 202101
